FAERS Safety Report 9943602 (Version 1)
Quarter: 2014Q1

REPORT INFORMATION
  Report Type: Spontaneous
  Country: PR (occurrence: PR)
  Receive Date: 20140303
  Receipt Date: 20140303
  Transmission Date: 20141002
  Serious: No
  Sender: FDA-Public Use
  Company Number: PR-ABBVIE-13P-131-1050228-00

PATIENT
  Age: 72 Year
  Sex: Female
  Weight: 82.63 kg

DRUGS (7)
  1. HUMIRA [Suspect]
     Indication: RHEUMATOID ARTHRITIS
     Route: 058
     Dates: start: 2010, end: 201301
  2. HUMIRA [Suspect]
     Route: 058
     Dates: start: 20130205
  3. LANTUS [Concomitant]
     Indication: DIABETES MELLITUS
     Dosage: 45 UNIT DAILY
     Route: 030
  4. HUMALOG [Concomitant]
     Indication: DIABETES MELLITUS
     Dosage: 10 UNIT DAILY
     Route: 030
  5. AVAPRO HCT [Concomitant]
     Indication: HYPERTENSION
     Dosage: 1 TABLET DAILY
     Route: 048
  6. ATENOLOL [Concomitant]
     Indication: HYPERTENSION
     Dosage: 1 TABLET DAILY
     Route: 048
  7. OMEPRAZOLE [Concomitant]
     Indication: GASTRITIS
     Dosage: 1 TABLET DAILY
     Route: 048

REACTIONS (1)
  - Nasopharyngitis [Recovering/Resolving]
